FAERS Safety Report 9695188 (Version 1)
Quarter: 2013Q4

REPORT INFORMATION
  Report Type: Report from Study
  Country: US (occurrence: US)
  Receive Date: 20131119
  Receipt Date: 20131119
  Transmission Date: 20140711
  Serious: Yes (Hospitalization)
  Sender: FDA-Public Use
  Company Number: US-JNJFOC-20131106125

PATIENT
  Age: 15 Year
  Sex: Male
  Weight: 40.37 kg

DRUGS (4)
  1. REMICADE [Suspect]
     Indication: CROHN^S DISEASE
     Route: 042
     Dates: start: 2012
  2. PREDNISONE [Concomitant]
     Indication: CROHN^S DISEASE
     Route: 065
     Dates: start: 2011
  3. BACTRIM [Concomitant]
     Indication: CHRONIC GRANULOMATOUS DISEASE
     Route: 065
     Dates: start: 2011
  4. SPORANOX [Concomitant]
     Indication: CHRONIC GRANULOMATOUS DISEASE
     Route: 065
     Dates: start: 2011

REACTIONS (6)
  - Pneumonia [Not Recovered/Not Resolved]
  - Hospitalisation [Unknown]
  - Pulmonary mass [Not Recovered/Not Resolved]
  - Infection [Unknown]
  - Chest pain [Unknown]
  - Inflammatory marker increased [Unknown]
